FAERS Safety Report 16864167 (Version 1)
Quarter: 2019Q3

REPORT INFORMATION
  Report Type: Spontaneous
  Country: CA (occurrence: CA)
  Receive Date: 20190927
  Receipt Date: 20190927
  Transmission Date: 20191005
  Serious: Yes (Other)
  Sender: FDA-Public Use
  Company Number: CA-009507513-1909CAN011028

PATIENT
  Age: 39 Year
  Sex: Female

DRUGS (3)
  1. PUREGON [FOLLITROPIN BETA] [Suspect]
     Active Substance: FOLLITROPIN
     Indication: IN VITRO FERTILISATION
     Dosage: UNK
     Route: 065
     Dates: start: 201811
  2. PREGNYL [Suspect]
     Active Substance: CHORIOGONADOTROPIN ALFA
     Indication: IN VITRO FERTILISATION
     Dosage: UNK
     Route: 065
     Dates: start: 201811
  3. ORGALUTRAN [Suspect]
     Active Substance: GANIRELIX ACETATE
     Indication: IN VITRO FERTILISATION
     Dosage: UNK
     Route: 065
     Dates: start: 201811

REACTIONS (3)
  - Abortion spontaneous [Unknown]
  - Maternal exposure before pregnancy [Recovered/Resolved]
  - Failed in vitro fertilisation [Unknown]

NARRATIVE: CASE EVENT DATE: 201811
